FAERS Safety Report 5705181-5 (Version None)
Quarter: 2008Q2

REPORT INFORMATION
  Report Type: 
  Country: None (occurrence: None)
  Receive Date: 20080410
  Receipt Date: 20080402
  Transmission Date: 20081010
  Serious: Yes (Death)
  Sender: FDA-Public Use
  Company Number: 163-21880-08011174

PATIENT
  Age: 68 Year
  Sex: Male

DRUGS (8)
  1. REVLIMID [Suspect]
     Indication: MANTLE CELL LYMPHOMA
     Dosage: 10 MG, DAILY FOR 21 DAYS, ORAL
     Route: 048
     Dates: start: 20080103, end: 20080112
  2. MORPHINE [Concomitant]
  3. PREDNISOLONE [Concomitant]
  4. PROTONIX [Concomitant]
  5. AMICAR (AMINOCAPROIC ACID) (SOLUTION) [Concomitant]
  6. OXYGEN (OXYGEN) [Concomitant]
  7. ALBUTEROL [Concomitant]
  8. ATIVAN [Concomitant]

REACTIONS (6)
  - ANXIETY [None]
  - DYSPNOEA [None]
  - MALIGNANT NEOPLASM PROGRESSION [None]
  - MANTLE CELL LYMPHOMA [None]
  - PAIN [None]
  - RESPIRATORY FAILURE [None]
